FAERS Safety Report 18301983 (Version 2)
Quarter: 2020Q4

REPORT INFORMATION
  Report Type: Report from Study
  Country: CA (occurrence: CA)
  Receive Date: 20200923
  Receipt Date: 20201113
  Transmission Date: 20210113
  Serious: Yes (Other)
  Sender: FDA-Public Use
  Company Number: CA-JNJFOC-20200928454

PATIENT
  Age: 54 Year
  Sex: Female
  Weight: 78.1 kg

DRUGS (1)
  1. REMICADE [Suspect]
     Active Substance: INFLIXIMAB
     Indication: CROHN^S DISEASE
     Route: 042

REACTIONS (5)
  - Cervix carcinoma [Recovered/Resolved]
  - Pinguecula [Unknown]
  - Skin cancer [Unknown]
  - Conjunctivitis [Recovering/Resolving]
  - Nail operation [Recovering/Resolving]

NARRATIVE: CASE EVENT DATE: 2020
